FAERS Safety Report 7960344-3 (Version None)
Quarter: 2011Q4

REPORT INFORMATION
  Report Type: 
  Country: None (occurrence: None)
  Receive Date: 20111206
  Receipt Date: 20111206
  Transmission Date: 20120403
  Serious: Yes (Death, Hospitalization)
  Sender: FDA-Public Use
  Company Number: PHHO2010JP11809

PATIENT
  Sex: Male
  Weight: 59 kg

DRUGS (11)
  1. OXINORM [Concomitant]
  2. SODIUM BICARBONATE [Concomitant]
  3. KENALOG [Concomitant]
  4. AFINITOR [Suspect]
     Dosage: 10 MG, QD
     Route: 048
     Dates: start: 20100820
  5. PANTOSIN [Concomitant]
  6. LOXOPROFEN [Concomitant]
  7. OXYCONTIN [Concomitant]
  8. LAXOBERON [Concomitant]
  9. MAGMITT [Concomitant]
  10. AFINITOR [Suspect]
     Indication: METASTATIC GASTRIC CANCER
     Dosage: 10 MG, QD
     Route: 048
     Dates: start: 20100716, end: 20100731
  11. MUCOSTA [Concomitant]

REACTIONS (7)
  - ABDOMINAL PAIN [None]
  - SHOCK HAEMORRHAGIC [None]
  - HAEMORRHAGE [None]
  - ILEOSTOMY [None]
  - UNRESPONSIVE TO STIMULI [None]
  - INTESTINAL FISTULA [None]
  - PYREXIA [None]
